FAERS Safety Report 18223130 (Version 2)
Quarter: 2020Q4

REPORT INFORMATION
  Report Type: Spontaneous
  Country: AR (occurrence: AR)
  Receive Date: 20200902
  Receipt Date: 20201117
  Transmission Date: 20210113
  Serious: Yes (Death, Hospitalization, Other)
  Sender: FDA-Public Use
  Company Number: AR-SHIRE-AR202028206

PATIENT
  Age: 66 Year
  Sex: Male
  Weight: 73.3 kg

DRUGS (8)
  1. TEDUGLUTIDE [Suspect]
     Active Substance: TEDUGLUTIDE
     Indication: MALABSORPTION
     Dosage: UNK
     Route: 065
     Dates: start: 20181017
  2. TEDUGLUTIDE [Suspect]
     Active Substance: TEDUGLUTIDE
     Indication: MESENTERIC ARTERY THROMBOSIS
     Dosage: 0.05 MILLIGRAM/KILOGRAM, QD
     Route: 058
  3. TEDUGLUTIDE [Suspect]
     Active Substance: TEDUGLUTIDE
     Indication: MESENTERIC ARTERY THROMBOSIS
     Dosage: 0.05 MILLIGRAM/KILOGRAM, QD
     Route: 058
  4. TEDUGLUTIDE [Suspect]
     Active Substance: TEDUGLUTIDE
     Indication: MESENTERIC ARTERY THROMBOSIS
     Dosage: 0.05 MILLIGRAM/KILOGRAM, QD
     Route: 058
  5. TEDUGLUTIDE [Suspect]
     Active Substance: TEDUGLUTIDE
     Indication: MALABSORPTION
     Dosage: UNK
     Route: 065
     Dates: start: 20181017
  6. TEDUGLUTIDE [Suspect]
     Active Substance: TEDUGLUTIDE
     Indication: MALABSORPTION
     Dosage: UNK
     Route: 065
     Dates: start: 20181017
  7. TEDUGLUTIDE [Suspect]
     Active Substance: TEDUGLUTIDE
     Indication: MALABSORPTION
     Dosage: UNK
     Route: 065
     Dates: start: 20181017
  8. TEDUGLUTIDE [Suspect]
     Active Substance: TEDUGLUTIDE
     Indication: MESENTERIC ARTERY THROMBOSIS
     Dosage: 0.05 MILLIGRAM/KILOGRAM, QD
     Route: 058

REACTIONS (9)
  - Product use in unapproved indication [Unknown]
  - Oropharyngeal pain [None]
  - Pyrexia [Unknown]
  - Urosepsis [Fatal]
  - Myalgia [Unknown]
  - Apathy [Unknown]
  - Respiratory distress [Unknown]
  - Acute kidney injury [Fatal]
  - Back pain [Unknown]

NARRATIVE: CASE EVENT DATE: 20181017
